FAERS Safety Report 16541382 (Version 2)
Quarter: 2019Q3

REPORT INFORMATION
  Report Type: Spontaneous
  Country: US (occurrence: US)
  Receive Date: 20190708
  Receipt Date: 20190903
  Transmission Date: 20191004
  Serious: Yes (Hospitalization, Other)
  Sender: FDA-Public Use
  Company Number: US-NOVOPROD-671000

PATIENT
  Age: 67 Year
  Sex: Male
  Weight: 93.89 kg

DRUGS (2)
  1. NOVOLOG [Suspect]
     Active Substance: INSULIN ASPART
     Dosage: SLIDING SCALE
     Route: 058
     Dates: start: 1999
  2. NOVOLOG [Suspect]
     Active Substance: INSULIN ASPART
     Indication: DIABETES MELLITUS
     Dosage: SLIDING SCALE
     Route: 058
     Dates: start: 1999

REACTIONS (11)
  - Eye haemorrhage [Recovering/Resolving]
  - Skin disorder [Not Recovered/Not Resolved]
  - Blood glucose decreased [Recovering/Resolving]
  - Diabetic neuropathy [Not Recovered/Not Resolved]
  - Blindness unilateral [Recovering/Resolving]
  - Blood glucose increased [Not Recovered/Not Resolved]
  - Diabetic foot [Unknown]
  - Blood glucose increased [Not Recovered/Not Resolved]
  - Glycosylated haemoglobin increased [Unknown]
  - Diabetes mellitus inadequate control [Unknown]
  - Treatment noncompliance [Unknown]

NARRATIVE: CASE EVENT DATE: 2019
